FAERS Safety Report 7726814-8 (Version None)
Quarter: 2011Q3

REPORT INFORMATION
  Report Type: 
  Country: None (occurrence: None)
  Receive Date: 20110902
  Receipt Date: 20110823
  Transmission Date: 20111222
  Serious: Yes (Life-Threatening, Hospitalization)
  Sender: FDA-Public Use
  Company Number: FR-GLAXOSMITHKLINE-B0741534A

PATIENT
  Sex: Female

DRUGS (5)
  1. CELOCURINE [Suspect]
     Indication: ANAESTHESIA
     Dosage: 60MG SINGLE DOSE
     Route: 042
     Dates: start: 20110804, end: 20110804
  2. CIPROFLOXACIN HCL [Suspect]
     Indication: PRODUCT USED FOR UNKNOWN INDICATION
     Dosage: 400MG SINGLE DOSE
     Route: 065
     Dates: start: 20110804, end: 20110804
  3. DIPRIVAN [Suspect]
     Indication: INDUCTION OF ANAESTHESIA
     Dosage: 250MG SINGLE DOSE
     Route: 042
     Dates: start: 20110804, end: 20110804
  4. SUFENTANIL CITRATE [Suspect]
     Indication: INDUCTION OF ANAESTHESIA
     Route: 042
     Dates: start: 20110804, end: 20110804
  5. AMOXICILLIN AND CLAVULANATE POTASSIUM [Suspect]
     Indication: SURGERY
     Dosage: 5G SINGLE DOSE
     Route: 042
     Dates: start: 20110804, end: 20110804

REACTIONS (5)
  - ANAPHYLACTIC SHOCK [None]
  - PULSE ABSENT [None]
  - TACHYCARDIA [None]
  - OXYGEN SATURATION DECREASED [None]
  - ERYTHEMA [None]
